FAERS Safety Report 20361905 (Version 1)
Quarter: 2022Q1

REPORT INFORMATION
  Report Type: Spontaneous
  Country: NL (occurrence: NL)
  Receive Date: 20220121
  Receipt Date: 20220121
  Transmission Date: 20220423
  Serious: Yes (Other)
  Sender: FDA-Public Use
  Company Number: None

PATIENT
  Age: 60 Year
  Sex: Male
  Weight: 85 kg

DRUGS (1)
  1. CHLORAMPHENICOL [Suspect]
     Active Substance: CHLORAMPHENICOL
     Indication: Eye inflammation
     Dosage: CHLORAMPHENICOL EYE DROPS 4MG/ML / BRAND NAME NOT SPECIFIED, THERAPY START DATE: ASKU
     Route: 065
     Dates: end: 20210502

REACTIONS (2)
  - Cataract [Not Recovered/Not Resolved]
  - Lens disorder [Not Recovered/Not Resolved]

NARRATIVE: CASE EVENT DATE: 20210502
